FAERS Safety Report 17882586 (Version 3)
Quarter: 2020Q4

REPORT INFORMATION
  Report Type: Spontaneous
  Country: FR (occurrence: FR)
  Receive Date: 20200610
  Receipt Date: 20201028
  Transmission Date: 20210113
  Serious: Yes (Hospitalization)
  Sender: FDA-Public Use
  Company Number: NVSC2020FR161428

PATIENT
  Age: 57 Year
  Sex: Male

DRUGS (2)
  1. METHOTREXATE. [Concomitant]
     Active Substance: METHOTREXATE
     Indication: PRODUCT USED FOR UNKNOWN INDICATION
     Dosage: UNK
     Route: 065
  2. ETANERCEPT [Suspect]
     Active Substance: ETANERCEPT
     Indication: WHIPPLE^S DISEASE
     Dosage: UNK
     Route: 065

REACTIONS (9)
  - Arthritis [Recovered/Resolved]
  - Tenosynovitis [Recovered/Resolved]
  - General physical health deterioration [Unknown]
  - Product use in unapproved indication [Unknown]
  - Whipple^s disease [Recovered/Resolved]
  - Synovial rupture [Unknown]
  - Off label use [Unknown]
  - Drug ineffective for unapproved indication [Unknown]
  - Pain [Recovered/Resolved]
